FAERS Safety Report 5935861-8 (Version None)
Quarter: 2008Q4

REPORT INFORMATION
  Report Type: 
  Country: None (occurrence: None)
  Receive Date: 20081030
  Receipt Date: 20081027
  Transmission Date: 20090506
  Serious: Yes (Hospitalization)
  Sender: FDA-Public Use
  Company Number: JP-BRISTOL-MYERS SQUIBB COMPANY-14340822

PATIENT
  Age: 63 Year
  Sex: Male

DRUGS (7)
  1. HYDREA [Suspect]
     Indication: MYELOFIBROSIS
     Route: 048
     Dates: end: 20080825
  2. LOXONIN [Concomitant]
  3. SELBEX [Concomitant]
     Route: 048
  4. ALINAMIN-F [Concomitant]
  5. MAGMITT [Concomitant]
     Route: 048
  6. ARGAMATE [Concomitant]
     Route: 048
  7. SODIUM CHLORIDE INJ [Concomitant]

REACTIONS (2)
  - INTERSTITIAL LUNG DISEASE [None]
  - PNEUMONIA [None]
